FAERS Safety Report 9452815 (Version 4)
Quarter: 2013Q3

REPORT INFORMATION
  Report Type: Spontaneous
  Country: JP (occurrence: JP)
  Receive Date: 20130812
  Receipt Date: 20130920
  Transmission Date: 20140515
  Serious: Yes (Other)
  Sender: FDA-Public Use
  Company Number: PHHY2013JP086207

PATIENT
  Sex: Male

DRUGS (3)
  1. DIOVAN [Suspect]
     Indication: HYPERTENSION
     Dosage: 80 MG, DAILY
     Route: 048
     Dates: end: 20130301
  2. OLMETEC [Suspect]
     Dosage: 10 MG, DAILY
     Route: 048
     Dates: start: 201303
  3. AMLODIPINE [Concomitant]
     Dosage: 2.5 MG
     Route: 048

REACTIONS (4)
  - Retinal haemorrhage [Unknown]
  - Age-related macular degeneration [Unknown]
  - Blood creatinine increased [Unknown]
  - Hypertension [Unknown]
